FAERS Safety Report 18106978 (Version 1)
Quarter: 2020Q3

REPORT INFORMATION
  Report Type: Spontaneous
  Country: CN (occurrence: CN)
  Receive Date: 20200803
  Receipt Date: 20200803
  Transmission Date: 20201103
  Serious: Yes (Other)
  Sender: FDA-Public Use
  Company Number: CN-SA-2020SA197606

PATIENT

DRUGS (1)
  1. STILNOX [Suspect]
     Active Substance: ZOLPIDEM TARTRATE
     Indication: SLEEP DISORDER
     Dosage: 5 MG, QD, ONCE EVERY EVENING
     Route: 048
     Dates: start: 20200713, end: 20200715

REACTIONS (1)
  - Stupor [Recovered/Resolved]

NARRATIVE: CASE EVENT DATE: 20200715
